FAERS Safety Report 14599470 (Version 4)
Quarter: 2022Q4

REPORT INFORMATION
  Report Type: Spontaneous
  Country: BR (occurrence: BR)
  Receive Date: 20180305
  Receipt Date: 20221018
  Transmission Date: 20230113
  Serious: Yes (Death, Hospitalization)
  Sender: FDA-Public Use
  Company Number: BR-PFIZER INC-2018087022

PATIENT
  Age: 69 Year
  Sex: Female

DRUGS (3)
  1. SUTENT [Suspect]
     Active Substance: SUNITINIB MALATE
     Dosage: 50 MG, CYCLIC (4X2; TAKING 28 DAYS AND PAUSING 14 DAYS)
     Dates: start: 201710
  2. SUTENT [Suspect]
     Active Substance: SUNITINIB MALATE
     Dosage: 25 MG, CYCLIC (2X1; TAKING FOR 2 WEEKS AND PAUSING ONE WEEK)
     Dates: start: 201801
  3. SUTENT [Suspect]
     Active Substance: SUNITINIB MALATE
     Dosage: 37.5 MG, CYCLIC (2X1; TAKING FOR 2 WEEKS AND PAUSING ONE WEEK)
     Dates: start: 201801

REACTIONS (8)
  - Death [Fatal]
  - Asthenia [Unknown]
  - Eating disorder [Unknown]
  - Neoplasm progression [Unknown]
  - Pain in extremity [Unknown]
  - Gait disturbance [Unknown]
  - Limb injury [Unknown]
  - Intentional product use issue [Unknown]

NARRATIVE: CASE EVENT DATE: 20220118
